FAERS Safety Report 16984756 (Version 1)
Quarter: 2019Q4

REPORT INFORMATION
  Report Type: Spontaneous
  Country: US (occurrence: US)
  Receive Date: 20190917
  Receipt Date: 20190917
  Transmission Date: 20200122
  Serious: No
  Sender: FDA-Public Use
  Company Number: None

PATIENT
  Age: 70 Year
  Sex: Male

DRUGS (1)
  1. PROTONIX [Suspect]
     Active Substance: PANTOPRAZOLE SODIUM
     Route: 048

REACTIONS (3)
  - Blood magnesium decreased [None]
  - Anaemia [None]
  - Vitamin B12 decreased [None]

NARRATIVE: CASE EVENT DATE: 20190917
